FAERS Safety Report 4668490-7 (Version None)
Quarter: 2005Q2

REPORT INFORMATION
  Report Type: 
  Country: None (occurrence: None)
  Receive Date: 20050523
  Receipt Date: 20050217
  Transmission Date: 20051028
  Serious: Yes (Other)
  Sender: FDA-Public Use
  Company Number: PHBS2005IT02560

PATIENT
  Age: 55 Year

DRUGS (5)
  1. PAMIDRONATE DISODIUM [Suspect]
     Indication: BREAST CANCER
     Dosage: UNK, UNK
     Route: 042
  2. NAVELBINE [Concomitant]
     Route: 065
  3. TRASTUZUMAB [Concomitant]
     Route: 065
  4. STEROIDS NOS [Concomitant]
     Route: 065
  5. ZOLEDRONIC ACID [Suspect]
     Indication: BREAST CANCER
     Dosage: UNK, UNK
     Route: 042

REACTIONS (4)
  - BONE DEBRIDEMENT [None]
  - EXCESSIVE GRANULATION TISSUE [None]
  - FUNGAL INFECTION [None]
  - OSTEONECROSIS [None]
